FAERS Safety Report 16123476 (Version 1)
Quarter: 2019Q1

REPORT INFORMATION
  Report Type: Spontaneous
  Country: DE (occurrence: DE)
  Receive Date: 20190327
  Receipt Date: 20190327
  Transmission Date: 20190418
  Serious: Yes (Other)
  Sender: FDA-Public Use
  Company Number: DE-TEVA-2019-DE-1031309

PATIENT
  Age: 75 Year
  Sex: Male

DRUGS (5)
  1. ALLOPURINOL-RATIOPHARM 300 MG TABLETTEN [Suspect]
     Active Substance: ALLOPURINOL
     Indication: GOUT
     Dosage: 300 MILLIGRAM DAILY;
     Route: 048
     Dates: start: 201805, end: 20190323
  2. SIMVASTATIN 20 MG [Concomitant]
     Active Substance: SIMVASTATIN
     Dosage: 20 MILLIGRAM DAILY;
     Route: 048
     Dates: start: 201805
  3. ELIQUIS [Concomitant]
     Active Substance: APIXABAN
     Dosage: 2 DOSAGE FORMS DAILY;
     Route: 048
     Dates: start: 201805
  4. CANDESARTAN 8MG [Concomitant]
     Active Substance: CANDESARTAN CILEXETIL
     Dosage: 8 MILLIGRAM DAILY;
     Route: 048
     Dates: start: 201805
  5. METOPROLOL 95MG [Concomitant]
     Dosage: 190 MILLIGRAM DAILY;
     Route: 048
     Dates: start: 201805

REACTIONS (4)
  - Cataract [Not Recovered/Not Resolved]
  - Bradykinesia [Not Recovered/Not Resolved]
  - Parkinson^s disease [Not Recovered/Not Resolved]
  - General physical health deterioration [Recovered/Resolved]

NARRATIVE: CASE EVENT DATE: 201805
